FAERS Safety Report 9504759 (Version 1)
Quarter: 2013Q3

REPORT INFORMATION
  Report Type: Spontaneous
  Country: GB (occurrence: GB)
  Receive Date: 20130906
  Receipt Date: 20130906
  Transmission Date: 20140515
  Serious: Yes (Life-Threatening)
  Sender: FDA-Public Use
  Company Number: PHHY2013GB096693

PATIENT
  Age: 63 Year
  Sex: Male
  Weight: 79 kg

DRUGS (13)
  1. METFORMIN [Suspect]
     Indication: TYPE 2 DIABETES MELLITUS
     Dosage: 1 G BID
     Route: 048
     Dates: start: 20060612
  2. METFORMIN [Suspect]
     Dosage: 500 MG, BID
  3. RANOLAZINE [Suspect]
     Indication: ANGINA PECTORIS
     Dosage: 500 MG BID
     Dates: start: 20130307
  4. RANOLAZINE [Suspect]
     Dosage: 375 MG, BID
  5. GLICLAZIDE [Concomitant]
     Dosage: 80 MG QD
  6. ATORVASTATIN [Concomitant]
     Dosage: 40 MG QD
  7. ATENOLOL [Concomitant]
     Dosage: 100 MG QD
  8. AMLODIPINE [Concomitant]
     Dosage: 10 MG QD
  9. RAMIPRIL [Concomitant]
     Dosage: 10 MG QD
  10. BENDROFLUMETHIAZIDE [Concomitant]
     Dosage: 2.5 MG QD
  11. LEVOTHYROXINE [Concomitant]
     Dosage: 75 QD
  12. ISOSORBIDE MONONITRATE [Concomitant]
     Dosage: 60 MG QD
  13. ASPIRIN [Concomitant]
     Dosage: 75 QD

REACTIONS (2)
  - Glomerular filtration rate decreased [Recovered/Resolved]
  - Renal impairment [Recovered/Resolved]
